FAERS Safety Report 22107928 (Version 1)
Quarter: 2023Q1

REPORT INFORMATION
  Report Type: Spontaneous
  Country: ES (occurrence: ES)
  Receive Date: 20230317
  Receipt Date: 20230317
  Transmission Date: 20230418
  Serious: Yes (Other)
  Sender: FDA-Public Use
  Company Number: ES-SA-SAC20230314000894

PATIENT
  Age: 75 Year
  Sex: Male

DRUGS (1)
  1. TOUJEO [Suspect]
     Active Substance: INSULIN GLARGINE
     Indication: Diabetes mellitus
     Dosage: UNK, 30 IN MARNIG AND 25 IN EVENING
     Route: 058

REACTIONS (8)
  - Hip fracture [Recovering/Resolving]
  - Fall [Recovering/Resolving]
  - Fatigue [Recovering/Resolving]
  - Bedridden [Recovering/Resolving]
  - Gait disturbance [Recovering/Resolving]
  - Hyperglycaemia [Recovering/Resolving]
  - Inappropriate schedule of product administration [Unknown]
  - Product storage error [Unknown]
